FAERS Safety Report 25359171 (Version 1)
Quarter: 2025Q2

REPORT INFORMATION
  Report Type: Report from Study
  Country: FR (occurrence: FR)
  Receive Date: 20250526
  Receipt Date: 20250526
  Transmission Date: 20250717
  Serious: Yes (Hospitalization)
  Sender: SANOFI AVENTIS
  Company Number: FR-SA-2025SA026257

PATIENT
  Age: 86 Year
  Sex: Female
  Weight: 58.2 kg

DRUGS (24)
  1. ISATUXIMAB [Suspect]
     Active Substance: ISATUXIMAB
     Indication: Plasma cell myeloma refractory
     Dosage: 650 MG, QW
     Dates: start: 20211230, end: 20220127
  2. ISATUXIMAB [Suspect]
     Active Substance: ISATUXIMAB
     Dosage: 650 MG, BIW
     Dates: start: 20220128, end: 20220224
  3. ISATUXIMAB [Suspect]
     Active Substance: ISATUXIMAB
     Dosage: 600 MG, BIW
     Dates: start: 20220225, end: 20220324
  4. ISATUXIMAB [Suspect]
     Active Substance: ISATUXIMAB
     Dosage: 600 MG, BIW
     Dates: start: 20220325, end: 20220422
  5. POMALIDOMIDE [Suspect]
     Active Substance: POMALIDOMIDE
     Indication: Plasma cell myeloma refractory
     Dosage: 2 MG, QD
     Dates: start: 20211230, end: 20220127
  6. POMALIDOMIDE [Suspect]
     Active Substance: POMALIDOMIDE
     Dosage: 4 MG, QD
     Dates: start: 20220128, end: 20220224
  7. POMALIDOMIDE [Suspect]
     Active Substance: POMALIDOMIDE
     Dosage: 2 MG, QD
     Dates: start: 20220225, end: 20220324
  8. POMALIDOMIDE [Suspect]
     Active Substance: POMALIDOMIDE
     Dosage: 2 MG, QD
     Dates: start: 20220325, end: 20220415
  9. DEXAMETHASONE [Suspect]
     Active Substance: DEXAMETHASONE
     Indication: Plasma cell myeloma refractory
     Dosage: 20 MG, QW
     Dates: start: 20211230, end: 20220127
  10. DEXAMETHASONE [Suspect]
     Active Substance: DEXAMETHASONE
     Dosage: 40 MG, QW
     Dates: start: 20220128, end: 20220224
  11. DEXAMETHASONE [Suspect]
     Active Substance: DEXAMETHASONE
     Dosage: 40 MG, QW
     Dates: start: 20220225, end: 20220324
  12. DEXAMETHASONE [Suspect]
     Active Substance: DEXAMETHASONE
     Dosage: 40 MG, QW
     Dates: start: 20220325, end: 20220422
  13. LERCANIDIPINE [Concomitant]
     Active Substance: LERCANIDIPINE
     Indication: Hypertension
     Dates: start: 2015
  14. LUMIGAN [Concomitant]
     Active Substance: BIMATOPROST
  15. VALACYCLOVIR HYDROCHLORIDE [Concomitant]
     Active Substance: VALACYCLOVIR HYDROCHLORIDE
     Indication: Antiviral prophylaxis
     Dates: start: 20211229
  16. BACTRIM [Concomitant]
     Active Substance: SULFAMETHOXAZOLE\TRIMETHOPRIM
     Indication: Antibiotic prophylaxis
     Dates: start: 2014
  17. LEUCOVORIN CALCIUM [Concomitant]
     Active Substance: LEUCOVORIN CALCIUM
     Dates: start: 20211129
  18. SODIUM ALGINATE\SODIUM BICARBONATE [Concomitant]
     Active Substance: SODIUM ALGINATE\SODIUM BICARBONATE
     Indication: Antacid therapy
     Dates: start: 20211229
  19. DOLIPRANE [Concomitant]
     Active Substance: ACETAMINOPHEN
     Indication: Antipyresis
     Dates: start: 20211229
  20. CHOLECALCIFEROL [Concomitant]
     Active Substance: CHOLECALCIFEROL
     Indication: Vitamin supplementation
     Dates: start: 20211229
  21. LOVENOX [Concomitant]
     Active Substance: ENOXAPARIN SODIUM
     Indication: Anticoagulant therapy
     Dates: start: 20170523
  22. TRAMADOL [Concomitant]
     Active Substance: TRAMADOL
     Indication: Pain prophylaxis
     Dates: start: 20211229
  23. DEXCHLORPHENIRAMINE [Concomitant]
     Active Substance: DEXCHLORPHENIRAMINE
     Dosage: UNK UNK, QW
     Dates: start: 20211229
  24. ACETAMINOPHEN [Concomitant]
     Active Substance: ACETAMINOPHEN
     Dosage: UNK, QW
     Dates: start: 20211229

REACTIONS (6)
  - COVID-19 [Recovered/Resolved]
  - Asthenia [Recovered/Resolved]
  - Vomiting [Recovered/Resolved]
  - Atrial fibrillation [Recovering/Resolving]
  - Nausea [Recovered/Resolved]
  - Dyspnoea [Recovered/Resolved]

NARRATIVE: CASE EVENT DATE: 20220503
